FAERS Safety Report 21306174 (Version 1)
Quarter: 2022Q3

REPORT INFORMATION
  Report Type: Spontaneous
  Country: US (occurrence: US)
  Receive Date: 20220908
  Receipt Date: 20220908
  Transmission Date: 20221026
  Serious: No
  Sender: FDA-Public Use
  Company Number: US-BRISTOL-MYERS SQUIBB COMPANY-2022-102754

PATIENT
  Age: 61 Year
  Sex: Female
  Weight: 84.821 kg

DRUGS (1)
  1. REVLIMID [Suspect]
     Active Substance: LENALIDOMIDE
     Indication: Plasma cell myeloma
     Dosage: 21D OF 28D CYCLE
     Route: 048
     Dates: start: 20210401, end: 20220817

REACTIONS (1)
  - COVID-19 [Recovering/Resolving]
